FAERS Safety Report 6122714-8 (Version None)
Quarter: 2009Q1

REPORT INFORMATION
  Report Type: 
  Country: None (occurrence: None)
  Receive Date: 20090318
  Receipt Date: 20090304
  Transmission Date: 20090719
  Serious: Yes (Life-Threatening)
  Sender: FDA-Public Use
  Company Number: GXKR2009DE02765

PATIENT
  Sex: Female
  Weight: 78 kg

DRUGS (8)
  1. CLOZAPINE (NGX) [Suspect]
     Dosage: 100 MG, QD
     Route: 048
     Dates: end: 20081212
  2. CITALOPRAM HYDROBROMIDE [Concomitant]
     Indication: DEPRESSION
     Dosage: 30 MG, QD
     Route: 048
     Dates: start: 20090204
  3. ESPUMISAN [Concomitant]
     Indication: CONSTIPATION
     Route: 048
  4. MADOPAR [Concomitant]
     Indication: RESTLESS LEGS SYNDROME
     Dosage: UNK
     Route: 048
     Dates: start: 20090113
  5. MADOPAR DEPOT [Concomitant]
     Indication: RESTLESS LEGS SYNDROME
     Dosage: UNK
     Route: 048
     Dates: start: 20090212, end: 20090212
  6. PROMETHAZINE [Concomitant]
     Indication: PSYCHOTIC DISORDER
     Dosage: 25 MG, QID
     Route: 048
     Dates: start: 20090112, end: 20090212
  7. SEROQUEL [Concomitant]
     Indication: PSYCHOTIC DISORDER
     Dosage: 600 MG, BID
     Route: 048
     Dates: start: 20090210, end: 20090212
  8. SIMVASTATIN [Concomitant]
     Indication: HYPERLIPIDAEMIA
     Dosage: UNK
     Route: 048
     Dates: start: 20081202, end: 20081212

REACTIONS (1)
  - ASTHMA [None]
